FAERS Safety Report 7952777-6 (Version None)
Quarter: 2011Q4

REPORT INFORMATION
  Report Type: 
  Country: None (occurrence: None)
  Receive Date: 20111201
  Receipt Date: 20111121
  Transmission Date: 20120403
  Serious: Yes (Hospitalization)
  Sender: FDA-Public Use
  Company Number: US-BAYER-2011-041931

PATIENT
  Age: 35 Year
  Sex: Female
  Weight: 77 kg

DRUGS (15)
  1. YASMIN [Suspect]
     Indication: PREMENSTRUAL SYNDROME
     Dosage: UNK
     Dates: start: 20040101, end: 20090901
  2. PHENERGAN [Concomitant]
     Dosage: UNK
     Dates: start: 20090728
  3. SALINA FISIOLOGICA [Concomitant]
     Dosage: UNK
     Dates: start: 20090728
  4. XANAX [Concomitant]
     Indication: DISTURBANCE IN ATTENTION
  5. ZOLPIDEM [Concomitant]
     Dosage: 10 MG, UNK
  6. YAZ [Suspect]
     Indication: CONTRACEPTION
     Dosage: UNK
     Dates: start: 20070101, end: 20090101
  7. FLUOXETINE [Concomitant]
     Indication: ANXIETY
     Dosage: UNK
     Dates: start: 20060501
  8. XANAX [Concomitant]
     Indication: INITIAL INSOMNIA
     Dosage: UNK
     Dates: start: 20080901
  9. WOMEN+#8217;S DAILY VITAMIN [Concomitant]
  10. PROTONIX [Concomitant]
  11. YASMIN [Suspect]
     Indication: CONTRACEPTION
     Dosage: UNK
     Dates: start: 20040101, end: 20070101
  12. METRONIDAZOLE [Concomitant]
     Dosage: UNK
     Dates: start: 20090801
  13. DROSPIRENONE AND ETHINYL ESTRADIOL [Suspect]
     Indication: CONTRACEPTION
     Dosage: UNK
     Dates: start: 20090101, end: 20090901
  14. YAZ [Suspect]
     Indication: PREMENSTRUAL SYNDROME
  15. DROSPIRENONE AND ETHINYL ESTRADIOL [Suspect]
     Indication: PREMENSTRUAL SYNDROME

REACTIONS (14)
  - ANXIETY [None]
  - PAIN [None]
  - CHEST PAIN [None]
  - DYSPNOEA [None]
  - MENOPAUSE [None]
  - GENERAL PHYSICAL HEALTH DETERIORATION [None]
  - PNEUMONIA [None]
  - MUSCLE SPASMS [None]
  - FATIGUE [None]
  - SINUSITIS [None]
  - NASOPHARYNGITIS [None]
  - PULMONARY EMBOLISM [None]
  - FEAR [None]
  - EMOTIONAL DISTRESS [None]
